FAERS Safety Report 15084543 (Version 1)
Quarter: 2018Q2

REPORT INFORMATION
  Report Type: Spontaneous
  Country: US (occurrence: US)
  Receive Date: 20180608
  Receipt Date: 20180608
  Transmission Date: 20180711
  Serious: No
  Sender: FDA-Public Use
  Company Number: None

PATIENT
  Age: 81 Year
  Sex: Female

DRUGS (2)
  1. CAPECITABINE TAB [Suspect]
     Active Substance: CAPECITABINE
     Indication: CHOLANGIOCARCINOMA
     Dosage: DAYS OF USE 1 WEEK
  2. CAPECITABINE TAB [Suspect]
     Active Substance: CAPECITABINE
     Indication: METASTASES TO LIVER
     Dosage: DAYS OF USE 1 WEEK

REACTIONS (2)
  - Transcription medication error [None]
  - Product packaging quantity issue [None]

NARRATIVE: CASE EVENT DATE: 20180608
